FAERS Safety Report 9003333 (Version 1)
Quarter: 2013Q1

REPORT INFORMATION
  Report Type: Spontaneous
  Country: US (occurrence: US)
  Receive Date: 20130108
  Receipt Date: 20130108
  Transmission Date: 20140127
  Serious: Yes (Other)
  Sender: FDA-Public Use
  Company Number: US-009507513-1301USA001829

PATIENT
  Age: 49 Year
  Sex: Male

DRUGS (3)
  1. MONTELUKAST SODIUM [Suspect]
     Indication: NASAL CONGESTION
     Dosage: 10 MG, QD
     Route: 048
  2. MONTELUKAST SODIUM [Suspect]
     Indication: RHINITIS ALLERGIC
  3. SUDAFED 12 HOUR [Suspect]
     Dosage: 60 MG, BID
     Route: 048

REACTIONS (1)
  - Erectile dysfunction [Unknown]
